FAERS Safety Report 8942088 (Version 1)
Quarter: 2012Q4

REPORT INFORMATION
  Report Type: 
  Country: GB (occurrence: GB)
  Receive Date: 20121203
  Receipt Date: 20121203
  Transmission Date: 20130627
  Serious: Yes (Disabling)
  Sender: FDA-Public Use
  Company Number: GB-TEVA-372032ISR

PATIENT
  Age: 14 Year
  Weight: 32 kg

DRUGS (2)
  1. TOPIRAMATE [Suspect]
     Indication: EPILEPSY
     Route: 048
     Dates: start: 2004
  2. SODIUM VALPROATE [Suspect]
     Indication: EPILEPSY
     Route: 048
     Dates: start: 2006

REACTIONS (1)
  - Cataract [Not Recovered/Not Resolved]
